FAERS Safety Report 13874263 (Version 2)
Quarter: 2017Q3

REPORT INFORMATION
  Report Type: Spontaneous
  Country: US (occurrence: US)
  Receive Date: 20170816
  Receipt Date: 20170818
  Transmission Date: 20171127
  Serious: Yes (Hospitalization)
  Sender: FDA-Public Use
  Company Number: US-CELGENEUS-USA-20170802479

PATIENT
  Sex: Female
  Weight: 52.21 kg

DRUGS (1)
  1. REVLIMID [Suspect]
     Active Substance: LENALIDOMIDE
     Indication: PLASMA CELL MYELOMA
     Dosage: 25 MILLIGRAM
     Route: 048
     Dates: start: 20170721

REACTIONS (8)
  - Dehydration [Unknown]
  - Musculoskeletal stiffness [Unknown]
  - Toothache [Unknown]
  - Eye movement disorder [Unknown]
  - Hyperhidrosis [Unknown]
  - Bone pain [Unknown]
  - Asthenia [Unknown]
  - Cerebral disorder [Unknown]
